FAERS Safety Report 13960455 (Version 1)
Quarter: 2017Q3

REPORT INFORMATION
  Report Type: Spontaneous
  Country: US (occurrence: US)
  Receive Date: 20170912
  Receipt Date: 20170912
  Transmission Date: 20171128
  Serious: Yes (Other)
  Sender: FDA-Public Use
  Company Number: US-ALLERGAN-1731635US

PATIENT
  Age: 11 Year
  Sex: Male
  Weight: 38.95 kg

DRUGS (3)
  1. LEXAPRO [Suspect]
     Active Substance: ESCITALOPRAM OXALATE
     Dosage: 20 MG, UNK
     Route: 048
     Dates: start: 20170715, end: 20170721
  2. LEXAPRO [Suspect]
     Active Substance: ESCITALOPRAM OXALATE
     Indication: ANXIETY
     Dosage: 10 MG, QD
     Route: 048
     Dates: start: 20170708, end: 20170714
  3. CONCERTA [Concomitant]
     Active Substance: METHYLPHENIDATE HYDROCHLORIDE
     Indication: ATTENTION DEFICIT/HYPERACTIVITY DISORDER
     Dosage: UNK
     Route: 065
     Dates: end: 20170725

REACTIONS (4)
  - Mania [Unknown]
  - Hypomania [Unknown]
  - Abnormal behaviour [Unknown]
  - Off label use [Unknown]

NARRATIVE: CASE EVENT DATE: 201707
